FAERS Safety Report 4597669-8 (Version None)
Quarter: 2005Q1

REPORT INFORMATION
  Report Type: 
  Country: None (occurrence: None)
  Receive Date: 20050303
  Receipt Date: 20050113
  Transmission Date: 20050727
  Serious: Yes (Other)
  Sender: FDA-Public Use
  Company Number: DE-GLAXOSMITHKLINE-D0045630A

PATIENT
  Sex: Female

DRUGS (4)
  1. ZOVIRAX [Suspect]
     Indication: HERPES ZOSTER
     Route: 042
  2. ZOVIRAX [Suspect]
     Dosage: 800MG TWICE PER DAY
     Route: 048
  3. CYCLOSPORINE [Concomitant]
     Route: 065
  4. MYCOPHENOLATE MOFETIL [Concomitant]
     Route: 065

REACTIONS (1)
  - KIDNEY TRANSPLANT REJECTION [None]
